FAERS Safety Report 7731602-2 (Version None)
Quarter: 2011Q3

REPORT INFORMATION
  Report Type: 
  Country: None (occurrence: None)
  Receive Date: 20110906
  Receipt Date: 20110616
  Transmission Date: 20111222
  Serious: Yes (Other)
  Sender: FDA-Public Use
  Company Number: US-AMGEN-USASP2011027529

PATIENT
  Age: 87 Year
  Sex: Female
  Weight: 83.447 kg

DRUGS (3)
  1. CALCIUM CARBONATE [Concomitant]
  2. PROLIA [Suspect]
     Indication: OSTEOPOROSIS POSTMENOPAUSAL
     Dosage: 60 MG, Q6MO
     Route: 058
     Dates: start: 20110509, end: 20110509
  3. VITAMIN D [Concomitant]

REACTIONS (2)
  - HYPOCALCAEMIA [None]
  - OEDEMA PERIPHERAL [None]
